FAERS Safety Report 10460799 (Version 2)
Quarter: 2014Q4

REPORT INFORMATION
  Report Type: Spontaneous
  Country: US (occurrence: US)
  Receive Date: 20140918
  Receipt Date: 20141110
  Transmission Date: 20150528
  Serious: No
  Sender: FDA-Public Use
  Company Number: US-BIOGENIDEC-2014BI095198

PATIENT
  Sex: Female

DRUGS (2)
  1. TECFIDERA [Suspect]
     Active Substance: DIMETHYL FUMARATE
     Indication: RELAPSING-REMITTING MULTIPLE SCLEROSIS
     Dates: start: 20140901, end: 20140914
  2. TECFIDERA [Suspect]
     Active Substance: DIMETHYL FUMARATE
     Indication: RELAPSING-REMITTING MULTIPLE SCLEROSIS
     Route: 048
     Dates: start: 20140829, end: 20140904

REACTIONS (10)
  - Mobility decreased [Recovered/Resolved]
  - Flushing [Recovered/Resolved]
  - Gait disturbance [Recovered/Resolved]
  - Pyrexia [Recovered/Resolved]
  - Balance disorder [Recovered/Resolved]
  - Paralysis [Recovered/Resolved]
  - Feeling hot [Recovered/Resolved]
  - Depressed mood [Recovered/Resolved]
  - Rhinorrhoea [Recovered/Resolved]
  - Abdominal distension [Recovered/Resolved]
